FAERS Safety Report 22284954 (Version 1)
Quarter: 2023Q2

REPORT INFORMATION
  Report Type: Spontaneous
  Country: US (occurrence: None)
  Receive Date: 20230503
  Receipt Date: 20230503
  Transmission Date: 20230721
  Serious: Yes (Other)
  Sender: FDA-Public Use
  Company Number: None

PATIENT
  Age: 58 Year
  Sex: Female
  Weight: 76.5 kg

DRUGS (6)
  1. ISOSORBIDE MONONITRATE [Suspect]
     Active Substance: ISOSORBIDE MONONITRATE
     Indication: Hypertension
     Dosage: 1 TABLET DAILY ORAL
     Route: 048
     Dates: start: 20230410, end: 20230411
  2. DEVICE [Concomitant]
     Active Substance: DEVICE
  3. BYSTOLIC [Concomitant]
     Active Substance: NEBIVOLOL HYDROCHLORIDE
  4. LOW DOSE ASPIRIN [Concomitant]
     Active Substance: ASPIRIN
  5. VITAMIN D3 [Concomitant]
     Active Substance: CHOLECALCIFEROL
  6. VITAMINS [Concomitant]
     Active Substance: VITAMINS

REACTIONS (10)
  - Blood pressure increased [None]
  - Headache [None]
  - Incoherent [None]
  - Arthralgia [None]
  - Back pain [None]
  - Vomiting [None]
  - Diarrhoea [None]
  - Dehydration [None]
  - Musculoskeletal stiffness [None]
  - Bedridden [None]

NARRATIVE: CASE EVENT DATE: 20230410
